FAERS Safety Report 6204354-5 (Version None)
Quarter: 2009Q2

REPORT INFORMATION
  Report Type: 
  Country: None (occurrence: None)
  Receive Date: 20090527
  Receipt Date: 20090519
  Transmission Date: 20091009
  Serious: Yes (Other)
  Sender: FDA-Public Use
  Company Number: US-JNJFOC-20090504894

PATIENT
  Age: 86 Year
  Sex: Male
  Weight: 104.33 kg

DRUGS (5)
  1. EXTRA STRENGTH TYLENOL [Suspect]
     Route: 048
  2. EXTRA STRENGTH TYLENOL [Suspect]
     Indication: PAIN
     Route: 048
  3. DIOVAN [Concomitant]
     Indication: HYPERTENSION
  4. FEOSOL [Concomitant]
     Indication: MINERAL SUPPLEMENTATION
  5. FUROSEMIDE [Concomitant]
     Indication: DIURETIC THERAPY

REACTIONS (1)
  - GASTRIC HAEMORRHAGE [None]
